FAERS Safety Report 5337108-2 (Version None)
Quarter: 2007Q2

REPORT INFORMATION
  Report Type: 
  Country: None (occurrence: None)
  Receive Date: 20070529
  Receipt Date: 20070516
  Transmission Date: 20071010
  Serious: Yes (Hospitalization)
  Sender: FDA-Public Use
  Company Number: DE-ELI_LILLY_AND_COMPANY-DE200705001017

PATIENT
  Age: 67 Year
  Sex: Male
  Weight: 70 kg

DRUGS (5)
  1. GEMCITABINE HCL [Suspect]
     Indication: NON-SMALL CELL LUNG CANCER
     Dosage: 1000 MG/M2, UNK
     Route: 042
     Dates: start: 20070403
  2. *CETUXIMAB [Suspect]
     Indication: NON-SMALL CELL LUNG CANCER
     Dosage: 400 MG/M2, UNK
     Route: 042
     Dates: start: 20070403
  3. ACETYLSALICYLIC ACID SRT [Concomitant]
     Indication: ARTERIAL OCCLUSIVE DISEASE
     Dosage: 1000 MG, UNK
     Dates: end: 20070429
  4. MOVICOL [Concomitant]
     Indication: CONSTIPATION
     Dates: end: 20070429
  5. LACTULOSE [Concomitant]
     Indication: CONSTIPATION
     Dosage: UNK, AS NEEDED
     Dates: start: 20070417

REACTIONS (1)
  - GASTROENTERITIS RADIATION [None]
